FAERS Safety Report 10744719 (Version 1)
Quarter: 2015Q1

REPORT INFORMATION
  Report Type: Spontaneous
  Country: US (occurrence: None)
  Receive Date: 20150126
  Receipt Date: 20150126
  Transmission Date: 20150721
  Serious: Yes (Other)
  Sender: FDA-Public Use
  Company Number: None

PATIENT
  Age: 69 Year
  Sex: Female
  Weight: 57.61 kg

DRUGS (2)
  1. LASTACAFT [Suspect]
     Active Substance: ALCAFTADINE
     Indication: OCULAR HYPERAEMIA
     Dosage: 1 DROP EACH EYE ONE TIME DAILY, INTO THE EYE
     Dates: start: 20141125, end: 20141224
  2. LASTACAFT [Suspect]
     Active Substance: ALCAFTADINE
     Indication: EYE ALLERGY
     Dosage: 1 DROP EACH EYE ONE TIME DAILY, INTO THE EYE
     Dates: start: 20141125, end: 20141224

REACTIONS (5)
  - Ocular hyperaemia [None]
  - Purulent discharge [None]
  - Product quality issue [None]
  - Lacrimation increased [None]
  - Drug hypersensitivity [None]
